FAERS Safety Report 11375622 (Version 1)
Quarter: 2015Q3

REPORT INFORMATION
  Report Type: Spontaneous
  Country: US (occurrence: US)
  Receive Date: 20150813
  Receipt Date: 20150813
  Transmission Date: 20151125
  Serious: No
  Sender: FDA-Public Use
  Company Number: US-ASTRAZENECA-2015SE75625

PATIENT
  Age: 831 Month
  Sex: Male
  Weight: 110.2 kg

DRUGS (3)
  1. BYETTA [Suspect]
     Active Substance: EXENATIDE
     Indication: TYPE 2 DIABETES MELLITUS
     Dosage: 250 UG/ 1.2 ML, 1.2 ML UNKNWON FREQUENCY
     Route: 058
     Dates: start: 20150701
  2. ATENOLOL. [Suspect]
     Active Substance: ATENOLOL
     Dosage: EVERY DAY
     Route: 065
  3. MEDICATION FOR HIGH BLOOD PRESSURE [Concomitant]
     Active Substance: UNSPECIFIED INGREDIENT
     Indication: HYPERTENSION

REACTIONS (1)
  - Weight decreased [Unknown]

NARRATIVE: CASE EVENT DATE: 201507
